FAERS Safety Report 7002739-0 (Version None)
Quarter: 2010Q3

REPORT INFORMATION
  Report Type: 
  Country: None (occurrence: None)
  Receive Date: 20100920
  Receipt Date: 20100908
  Transmission Date: 20110219
  Serious: Yes (Hospitalization)
  Sender: FDA-Public Use
  Company Number: US-CELGENEUS-163-21880-10090850

PATIENT
  Sex: Male

DRUGS (2)
  1. REVLIMID [Suspect]
     Indication: MASTOCYTOMA
     Route: 048
     Dates: start: 20100624, end: 20100801
  2. REVLIMID [Suspect]
     Route: 048
     Dates: start: 20100901

REACTIONS (4)
  - DIARRHOEA [None]
  - HAEMORRHAGE [None]
  - INFECTION [None]
  - RASH PRURITIC [None]
